FAERS Safety Report 8087964-2 (Version None)
Quarter: 2012Q1

REPORT INFORMATION
  Report Type: 
  Country: None (occurrence: None)
  Receive Date: 20120130
  Receipt Date: 20120125
  Transmission Date: 20120608
  Serious: Yes (Death)
  Sender: FDA-Public Use
  Company Number: SI-ASTRAZENECA-2012SE05223

PATIENT
  Age: 77 Year
  Sex: Female

DRUGS (2)
  1. SUCCINYLCHOLINE CHLORIDE [Suspect]
     Indication: BIOPSY LYMPH GLAND
  2. PROPOFOL [Suspect]
     Indication: BIOPSY LYMPH GLAND
     Route: 042

REACTIONS (1)
  - ANAPHYLACTIC REACTION [None]
